FAERS Safety Report 7761765-4 (Version None)
Quarter: 2011Q3

REPORT INFORMATION
  Report Type: 
  Country: None (occurrence: None)
  Receive Date: 20110920
  Receipt Date: 20110913
  Transmission Date: 20111222
  Serious: Yes (Other)
  Sender: FDA-Public Use
  Company Number: PHHY2011JP81780

PATIENT

DRUGS (2)
  1. EXELON [Suspect]
     Dosage: 4.5 MG, DAILY
     Route: 062
     Dates: start: 20110810, end: 20110906
  2. GRAMALIL [Concomitant]
     Dosage: UNK UKN, UNK

REACTIONS (1)
  - DELIRIUM [None]
